FAERS Safety Report 6975834-X (Version None)
Quarter: 2010Q3

REPORT INFORMATION
  Report Type: 
  Country: None (occurrence: None)
  Receive Date: 20100910
  Receipt Date: 20090408
  Transmission Date: 20110219
  Serious: No
  Sender: FDA-Public Use
  Company Number: US-WYE-H08876409

PATIENT
  Sex: Male
  Weight: 85.35 kg

DRUGS (6)
  1. PRISTIQ [Suspect]
     Indication: ANGER
     Route: 048
     Dates: start: 20090301, end: 20090101
  2. PRISTIQ [Suspect]
     Indication: AGGRESSION
     Route: 048
     Dates: start: 20090101
  3. NEXIUM [Concomitant]
  4. DILTIAZEM [Concomitant]
  5. ZOCOR [Concomitant]
  6. CLARINEX [Concomitant]

REACTIONS (3)
  - ANGER [None]
  - IRRITABILITY [None]
  - MOOD ALTERED [None]
